FAERS Safety Report 4408049-X (Version None)
Quarter: 2004Q3

REPORT INFORMATION
  Report Type: 
  Country: None (occurrence: None)
  Receive Date: 20040721
  Receipt Date: 20040709
  Transmission Date: 20050211
  Serious: Yes (Hospitalization)
  Sender: FDA-Public Use
  Company Number: 207446

PATIENT
  Sex: Female

DRUGS (5)
  1. MABTHERA       (RITUXIMAB) [Suspect]
     Indication: B-CELL LYMPHOMA
     Dosage: 600 MG
     Route: 042
     Dates: start: 20040616, end: 20040616
  2. CYCLOPHOSPHAMIDE [Concomitant]
  3. DOXORUBICIN HYDROCHLORIDE [Concomitant]
  4. VINCRISTINE [Concomitant]
  5. PREDNISONE [Concomitant]

REACTIONS (5)
  - INFUSION RELATED REACTION [None]
  - LIVER FUNCTION TEST ABNORMAL [None]
  - MALAISE [None]
  - NEUTROPENIA [None]
  - THROAT TIGHTNESS [None]
